FAERS Safety Report 4266215-0 (Version None)
Quarter: 2004Q1

REPORT INFORMATION
  Report Type: 
  Country: None (occurrence: None)
  Receive Date: 20040106
  Receipt Date: 20031229
  Transmission Date: 20041129
  Serious: Yes (Hospitalization)
  Sender: FDA-Public Use
  Company Number: 2003SE05462

PATIENT
  Age: 84 Year
  Sex: Female

DRUGS (3)
  1. BLOPRESS [Suspect]
     Indication: HYPERTENSION
     Dosage: 8 MG DAILY PO
     Route: 048
     Dates: start: 20030922, end: 20031114
  2. AMLODIPINE BESYLATE [Concomitant]
  3. ETIZOLAM [Concomitant]

REACTIONS (3)
  - CRUSH SYNDROME [None]
  - FALL [None]
  - RHABDOMYOLYSIS [None]
